FAERS Safety Report 18811054 (Version 1)
Quarter: 2021Q1

REPORT INFORMATION
  Report Type: Report from Study
  Country: None (occurrence: ES)
  Receive Date: 20210130
  Receipt Date: 20210130
  Transmission Date: 20210419
  Serious: Yes (Hospitalization, Other)
  Sender: FDA-Public Use
  Company Number: ES-ABBVIE-20K-144-3408037-00

PATIENT
  Age: 78 Year
  Sex: Male
  Weight: 55 kg

DRUGS (15)
  1. DUODOPA [Suspect]
     Active Substance: CARBIDOPA\LEVODOPA
     Route: 050
     Dates: start: 20201001, end: 20201005
  2. LEVODOPA [Concomitant]
     Active Substance: LEVODOPA
     Indication: PRODUCT USED FOR UNKNOWN INDICATION
     Route: 048
  3. DUODOPA [Suspect]
     Active Substance: CARBIDOPA\LEVODOPA
     Dosage: MD INCREASED TO 6.5 ML, CD AT 1.8 ML/H, ED WAS LOWERED 1.5 ML
     Route: 050
     Dates: start: 2020, end: 2020
  4. DUODOPA [Suspect]
     Active Substance: CARBIDOPA\LEVODOPA
     Dosage: DOSES ARE REDUCED TO MORNING DOSE 3.5, CONTINUOUS DOSE 1.9,?EXTRA DOSE 2
     Route: 050
     Dates: start: 2020, end: 202009
  5. DUODOPA [Suspect]
     Active Substance: CARBIDOPA\LEVODOPA
     Dosage: INCREASED MORNING DOSE TO 8ML
     Route: 050
     Dates: start: 20201005, end: 202101
  6. FOLIC ACID. [Concomitant]
     Active Substance: FOLIC ACID
     Indication: PRODUCT USED FOR UNKNOWN INDICATION
     Route: 048
  7. DUODOPA [Suspect]
     Active Substance: CARBIDOPA\LEVODOPA
     Indication: PARKINSON^S DISEASE
     Route: 050
     Dates: start: 20190122, end: 2020
  8. DUODOPA [Suspect]
     Active Substance: CARBIDOPA\LEVODOPA
     Dosage: CD LOWERED TO 1.8 ML, MD INCREASED TO 5.5 ML (2 ML MORE)
     Route: 050
     Dates: start: 202009, end: 2020
  9. MARIXINO [Concomitant]
     Indication: NEUROPSYCHIATRIC SYMPTOMS
     Route: 048
     Dates: start: 20200517, end: 2020
  10. MIRAPEXIN [Concomitant]
     Active Substance: PRAMIPEXOLE
     Indication: PRODUCT USED FOR UNKNOWN INDICATION
     Dates: start: 20200907, end: 202009
  11. MADOPAR [Concomitant]
     Active Substance: BENSERAZIDE HYDROCHLORIDE\LEVODOPA
     Indication: PRODUCT USED FOR UNKNOWN INDICATION
     Route: 048
  12. STALEVO [Concomitant]
     Active Substance: CARBIDOPA\ENTACAPONE\LEVODOPA
     Indication: PARKINSON^S DISEASE
     Route: 048
     Dates: end: 202009
  13. STALEVO [Concomitant]
     Active Substance: CARBIDOPA\ENTACAPONE\LEVODOPA
     Dosage: EVERY 24H AT NIGHT
     Route: 048
     Dates: start: 202009
  14. MARIXINO [Concomitant]
     Route: 048
     Dates: start: 20200907
  15. RIVAROXABAN [Concomitant]
     Active Substance: RIVAROXABAN
     Indication: PRODUCT USED FOR UNKNOWN INDICATION
     Dosage: AT NIGHT
     Route: 048

REACTIONS (16)
  - Nervousness [Unknown]
  - Aggression [Recovering/Resolving]
  - Freezing phenomenon [Not Recovered/Not Resolved]
  - Intentional product misuse [Unknown]
  - Delusion [Not Recovered/Not Resolved]
  - Behaviour disorder [Recovered/Resolved]
  - Anger [Not Recovered/Not Resolved]
  - Neuropsychiatric symptoms [Recovered/Resolved]
  - Cognitive disorder [Not Recovered/Not Resolved]
  - Obsessive-compulsive personality disorder [Recovering/Resolving]
  - Depressed mood [Unknown]
  - Device dislocation [Unknown]
  - Condition aggravated [Unknown]
  - Muscle rigidity [Not Recovered/Not Resolved]
  - Parkinson^s disease [Unknown]
  - Therapeutic product effect incomplete [Not Recovered/Not Resolved]

NARRATIVE: CASE EVENT DATE: 2020
